FAERS Safety Report 21454695 (Version 25)
Quarter: 2024Q1

REPORT INFORMATION
  Report Type: Spontaneous
  Country: US (occurrence: US)
  Receive Date: 20221013
  Receipt Date: 20240131
  Transmission Date: 20240410
  Serious: Yes (Hospitalization, Other)
  Sender: FDA-Public Use
  Company Number: US-SA-SAC20221011001081

PATIENT
  Age: 47 Year
  Sex: Male
  Weight: 54.4 kg

DRUGS (39)
  1. DUPIXENT [Suspect]
     Active Substance: DUPILUMAB
     Indication: Dermatitis atopic
     Dosage: 300 MG, QOW
     Route: 058
     Dates: start: 202009
  2. ATORVASTATIN [Suspect]
     Active Substance: ATORVASTATIN
     Dosage: 1 DF
     Route: 065
  3. VIMPAT [Concomitant]
     Active Substance: LACOSAMIDE
     Dosage: UNK
  4. ONDANSETRON HYDROCHLORIDE [Concomitant]
     Active Substance: ONDANSETRON HYDROCHLORIDE
     Dosage: UNK
  5. VENTOLIN HFA [Concomitant]
     Active Substance: ALBUTEROL SULFATE
     Dosage: UNK
  6. SINGULAIR [Concomitant]
     Active Substance: MONTELUKAST SODIUM
     Dosage: UNK
  7. ACETAMINOPHEN\HYDROCODONE [Concomitant]
     Active Substance: ACETAMINOPHEN\HYDROCODONE
     Dosage: UNK
  8. AUGMENTIN [Concomitant]
     Active Substance: AMOXICILLIN\CLAVULANATE POTASSIUM
     Dosage: 500-125 MG
  9. ALBUTEROL [Concomitant]
     Active Substance: ALBUTEROL
     Dosage: UNK
  10. CLOBETASOL [Concomitant]
     Active Substance: CLOBETASOL
     Dosage: UNK
  11. PREDNISONE [Concomitant]
     Active Substance: PREDNISONE
     Dosage: UNK
  12. PLAQUENIL [Concomitant]
     Active Substance: HYDROXYCHLOROQUINE SULFATE
     Dosage: UNK
  13. AMITIZA [Concomitant]
     Active Substance: LUBIPROSTONE
     Dosage: 24MCG
  14. AMITIZA [Concomitant]
     Active Substance: LUBIPROSTONE
  15. METOPROLOL SUCCINATE [Concomitant]
     Active Substance: METOPROLOL SUCCINATE
     Dosage: UNK
  16. GABITRIL [Concomitant]
     Active Substance: TIAGABINE HYDROCHLORIDE
     Dosage: UNK
  17. COPPERTONE [OXYBENZONE;PADIMATE] [Concomitant]
     Dosage: UNK
  18. CUREL ADVANCED CERAMIDE THERAPY [Concomitant]
     Active Substance: PETROLATUM
  19. ONFI [Concomitant]
     Active Substance: CLOBAZAM
     Dosage: UNK
  20. ACETAMINOPHEN\HYDROCODONE [Concomitant]
     Active Substance: ACETAMINOPHEN\HYDROCODONE
     Dosage: UNK
  21. ARTIFICIAL TEARS [CARMELLOSE SODIUM] [Concomitant]
     Dosage: UNK, 0.1%-0.3%
  22. DOXYCYCLINE HYCLATE [Concomitant]
     Active Substance: DOXYCYCLINE HYCLATE
     Dosage: UNK
  23. PANTOPRAZOLE SODIUM [Concomitant]
     Active Substance: PANTOPRAZOLE SODIUM
     Dosage: UNK
  24. CLOBAZAM [Concomitant]
     Active Substance: CLOBAZAM
     Dosage: UNK
  25. MONTELUKAST SODIUM [Concomitant]
     Active Substance: MONTELUKAST SODIUM
     Dosage: UNK
  26. ASPIRIN [Concomitant]
     Active Substance: ASPIRIN
     Dosage: UNK
  27. ASPIRIN [Concomitant]
     Active Substance: ASPIRIN
     Dosage: UNK
  28. LIPITOR [Concomitant]
     Active Substance: ATORVASTATIN CALCIUM
     Dosage: UNK
  29. CLOPIDOGREL [Concomitant]
     Active Substance: CLOPIDOGREL BISULFATE
     Dosage: UNK
  30. POLYVINYL ALCOHOL [Concomitant]
     Active Substance: POLYVINYL ALCOHOL
     Dosage: UNK
  31. GLYCEROL;HYPROMELLOSE;MACROGOL [Concomitant]
  32. ROSUVASTATIN CALCIUM [Concomitant]
     Active Substance: ROSUVASTATIN CALCIUM
     Dosage: UNK
  33. ROSUVASTATIN [Concomitant]
     Active Substance: ROSUVASTATIN
     Dosage: UNK
  34. DOXYCYCLINE [Concomitant]
     Active Substance: DOXYCYCLINE
  35. PANTOPRAZOLE [Concomitant]
     Active Substance: PANTOPRAZOLE
  36. MONTELUKAST [Concomitant]
     Active Substance: MONTELUKAST SODIUM
  37. METOPROLOL [Concomitant]
     Active Substance: METOPROLOL
  38. PANTOPRAZOLE SODIUM [Concomitant]
     Active Substance: PANTOPRAZOLE SODIUM
     Dosage: UNK
  39. CLOBETASOL PROPIONATE [Concomitant]
     Active Substance: CLOBETASOL PROPIONATE
     Dosage: UNK

REACTIONS (65)
  - Myocardial infarction [Recovering/Resolving]
  - Atrioventricular block [Unknown]
  - Dysphemia [Unknown]
  - Haematological infection [Unknown]
  - Dehydration [Unknown]
  - Loss of consciousness [Unknown]
  - Lupus-like syndrome [Not Recovered/Not Resolved]
  - Loss of consciousness [Unknown]
  - Headache [Not Recovered/Not Resolved]
  - Ear discomfort [Unknown]
  - Bone pain [Unknown]
  - Palpitations [Not Recovered/Not Resolved]
  - Illness [Not Recovered/Not Resolved]
  - Hypoaesthesia [Not Recovered/Not Resolved]
  - Skin warm [Not Recovered/Not Resolved]
  - Abdominal discomfort [Not Recovered/Not Resolved]
  - Tremor [Not Recovered/Not Resolved]
  - Generalised oedema [Unknown]
  - Thirst [Unknown]
  - Pain [Unknown]
  - Fluid retention [Unknown]
  - Gastrointestinal disorder [Unknown]
  - Lacrimation increased [Not Recovered/Not Resolved]
  - Fatigue [Not Recovered/Not Resolved]
  - Dry skin [Not Recovered/Not Resolved]
  - Temperature regulation disorder [Unknown]
  - Musculoskeletal stiffness [Unknown]
  - Sleep disorder [Unknown]
  - Back disorder [Not Recovered/Not Resolved]
  - Sensory loss [Not Recovered/Not Resolved]
  - Peripheral coldness [Not Recovered/Not Resolved]
  - Facial pain [Not Recovered/Not Resolved]
  - Stomatitis [Not Recovered/Not Resolved]
  - Oral pain [Not Recovered/Not Resolved]
  - Tongue disorder [Not Recovered/Not Resolved]
  - Depression [Unknown]
  - Fatigue [Unknown]
  - Weight increased [Unknown]
  - Tremor [Unknown]
  - Feeling abnormal [Unknown]
  - Musculoskeletal discomfort [Not Recovered/Not Resolved]
  - Photosensitivity reaction [Unknown]
  - Mobility decreased [Unknown]
  - Malaise [Unknown]
  - Pain [Unknown]
  - Dermatitis [Unknown]
  - Balance disorder [Unknown]
  - Confusional state [Unknown]
  - Feeling drunk [Unknown]
  - Electric shock sensation [Unknown]
  - Peripheral swelling [Unknown]
  - Migraine [Unknown]
  - Memory impairment [Unknown]
  - Brain fog [Unknown]
  - Stress [Unknown]
  - Dizziness [Unknown]
  - Musculoskeletal chest pain [Unknown]
  - Back pain [Unknown]
  - Rash erythematous [Unknown]
  - Pain in extremity [Unknown]
  - Pruritus [Unknown]
  - Dry eye [Not Recovered/Not Resolved]
  - Dermatitis atopic [Not Recovered/Not Resolved]
  - Arthralgia [Unknown]
  - Therapeutic response shortened [Unknown]

NARRATIVE: CASE EVENT DATE: 20220101
